FAERS Safety Report 9500659 (Version 3)
Quarter: 2013Q4

REPORT INFORMATION
  Report Type: Spontaneous
  Country: US (occurrence: US)
  Receive Date: 20130905
  Receipt Date: 20131031
  Transmission Date: 20140711
  Serious: Yes (Other)
  Sender: FDA-Public Use
  Company Number: US-SHIRE-ALL1-2013-05915

PATIENT
  Age: 16 Year
  Sex: Female
  Weight: 48.07 kg

DRUGS (4)
  1. VPRIV [Suspect]
     Indication: GAUCHER^S DISEASE
     Dosage: 2400 IU (45 U/KG), 1X/WEEK
     Route: 041
     Dates: start: 20111003
  2. CALCIUM [Concomitant]
     Indication: SUPPLEMENTATION THERAPY
     Dosage: 1 DF, 1X/DAY:QD
     Route: 048
  3. VITAMIN D                          /00107901/ [Concomitant]
     Indication: SUPPLEMENTATION THERAPY
     Dosage: 1 DF, 1X/DAY:QD
     Route: 048
  4. ZAVESCA                            /01588502/ [Concomitant]
     Indication: GAUCHER^S DISEASE
     Dosage: 100 MG, 2X/DAY:BID
     Route: 048
     Dates: start: 201211

REACTIONS (2)
  - Mass [Not Recovered/Not Resolved]
  - Off label use [Not Recovered/Not Resolved]
